FAERS Safety Report 7803116-2 (Version None)
Quarter: 2011Q4

REPORT INFORMATION
  Report Type: 
  Country: None (occurrence: None)
  Receive Date: 20111007
  Receipt Date: 20110930
  Transmission Date: 20120403
  Serious: Yes (Disabling)
  Sender: FDA-Public Use
  Company Number: US-JNJFOC-20110909960

PATIENT
  Sex: Female
  Weight: 121.56 kg

DRUGS (6)
  1. VITAMIN D [Concomitant]
     Dosage: DOSE 50000
     Route: 048
     Dates: start: 20110401
  2. REMICADE [Suspect]
     Indication: ARTHRITIS
     Route: 042
     Dates: start: 20110901
  3. CALCIUM WITH VITAMIN D [Concomitant]
     Route: 048
     Dates: start: 20110401
  4. ASPIRIN [Concomitant]
     Route: 048
     Dates: start: 19880101
  5. ANTI-ANXIETY MEDICATION (NOS) [Concomitant]
     Indication: ANXIETY
     Route: 048
     Dates: start: 20030101
  6. METHOTREXATE [Concomitant]
     Indication: ARTHRITIS
     Route: 048
     Dates: start: 20110101

REACTIONS (9)
  - MIGRAINE [None]
  - IMPAIRED WORK ABILITY [None]
  - PAIN [None]
  - INFUSION RELATED REACTION [None]
  - FEELING COLD [None]
  - ABASIA [None]
  - ARTHRALGIA [None]
  - BLOOD PRESSURE INCREASED [None]
  - FEELING HOT [None]
